FAERS Safety Report 18415286 (Version 2)
Quarter: 2021Q1

REPORT INFORMATION
  Report Type: Spontaneous
  Country: US (occurrence: US)
  Receive Date: 20201022
  Receipt Date: 20210331
  Transmission Date: 20210419
  Serious: No
  Sender: FDA-Public Use
  Company Number: US-BAYER-2020-221999

PATIENT
  Age: 42 Year
  Sex: Female

DRUGS (6)
  1. CLARITIN [Suspect]
     Active Substance: LORATADINE
     Indication: ALLERGIC RESPIRATORY SYMPTOM
     Dosage: UNK
     Dates: start: 202009
  2. CLARITIN LIQUI?GELS [Suspect]
     Active Substance: LORATADINE
     Indication: NASOPHARYNGITIS
  3. CLARITIN?D 12 HOUR [Concomitant]
     Active Substance: LORATADINE\PSEUDOEPHEDRINE SULFATE
     Indication: ALLERGIC RESPIRATORY SYMPTOM
     Dosage: 1 DF
  4. CLARITIN [Suspect]
     Active Substance: LORATADINE
     Indication: NASOPHARYNGITIS
  5. CLARITIN LIQUI?GELS [Suspect]
     Active Substance: LORATADINE
     Indication: ALLERGIC RESPIRATORY SYMPTOM
     Dosage: 1 DF
     Route: 048
     Dates: start: 202001
  6. CLARITIN?D 12 HOUR [Concomitant]
     Active Substance: LORATADINE\PSEUDOEPHEDRINE SULFATE
     Indication: NASOPHARYNGITIS

REACTIONS (3)
  - Maternal exposure during breast feeding [None]
  - Drug ineffective [Unknown]
  - Drug ineffective [Unknown]

NARRATIVE: CASE EVENT DATE: 2020
